FAERS Safety Report 6088823-7 (Version None)
Quarter: 2009Q1

REPORT INFORMATION
  Report Type: 
  Country: None (occurrence: None)
  Receive Date: 20090220
  Receipt Date: 20090220
  Transmission Date: 20090719
  Serious: No
  Sender: FDA-Public Use
  Company Number: None

PATIENT
  Age: 67 Year
  Sex: Female
  Weight: 77.1115 kg

DRUGS (2)
  1. COETIDROCAL 400MG COBALT PHARMACEUTICALS INC [Suspect]
     Indication: BACK PAIN
     Dosage: WHITE PILL 1 A DAY; BLUE PILL AFTER WHITE 1 A DAY
     Dates: start: 20090210, end: 20090226
  2. COETIDROCAL 400MG COBALT PHARMACEUTICALS INC [Suspect]
     Indication: DIARRHOEA
     Dosage: WHITE PILL 1 A DAY; BLUE PILL AFTER WHITE 1 A DAY
     Dates: start: 20090210, end: 20090226

REACTIONS (3)
  - BACK PAIN [None]
  - BONE PAIN [None]
  - DYSPNOEA [None]
